FAERS Safety Report 24850724 (Version 1)
Quarter: 2025Q1

REPORT INFORMATION
  Report Type: Spontaneous
  Country: CA (occurrence: CA)
  Receive Date: 20250116
  Receipt Date: 20250116
  Transmission Date: 20250408
  Serious: Yes (Hospitalization, Other)
  Sender: PFIZER
  Company Number: CA-PFIZER INC-202500009773

PATIENT
  Age: 68 Year
  Sex: Male
  Weight: 74 kg

DRUGS (10)
  1. VORICONAZOLE [Interacting]
     Active Substance: VORICONAZOLE
     Indication: Infection
     Route: 065
  2. VENCLEXTA [Interacting]
     Active Substance: VENETOCLAX
     Indication: Acute myeloid leukaemia
     Dosage: 400 MG, 1X/DAY
     Route: 048
  3. VENCLEXTA [Interacting]
     Active Substance: VENETOCLAX
     Dosage: 100 MG, 1X/DAY
     Route: 048
  4. AZACITIDINE [Concomitant]
     Active Substance: AZACITIDINE
     Indication: Acute myeloid leukaemia
     Route: 065
  5. AZACITIDINE [Concomitant]
     Active Substance: AZACITIDINE
     Dosage: 14 MG, 1X/DAY
     Route: 058
  6. CETIRIZINE [Concomitant]
     Active Substance: CETIRIZINE HYDROCHLORIDE
     Dosage: 20 MG, 1X/DAY
     Route: 065
  7. LORAZEPAM [Concomitant]
     Active Substance: LORAZEPAM
     Route: 065
  8. METOCLOPRAMIDE [Concomitant]
     Active Substance: METOCLOPRAMIDE
     Indication: Vomiting
     Route: 065
  9. TOBRADEX [Concomitant]
     Active Substance: DEXAMETHASONE\TOBRAMYCIN
     Route: 065
  10. VALACYCLOVIR HYDROCHLORIDE [Concomitant]
     Active Substance: VALACYCLOVIR HYDROCHLORIDE
     Route: 065

REACTIONS (9)
  - Contraindicated product administered [Recovered/Resolved]
  - Drug interaction [Recovered/Resolved]
  - Atrial fibrillation [Recovered/Resolved]
  - Febrile neutropenia [Recovered/Resolved]
  - Hepatic candidiasis [Recovered/Resolved]
  - Hypotension [Recovered/Resolved]
  - Lung disorder [Recovered/Resolved]
  - Transfusion [Recovered/Resolved]
  - Off label use [Unknown]
